FAERS Safety Report 14800623 (Version 2)
Quarter: 2018Q3

REPORT INFORMATION
  Report Type: Report from Study
  Country: US (occurrence: US)
  Receive Date: 20180424
  Receipt Date: 20180710
  Transmission Date: 20181010
  Serious: Yes (Death, Hospitalization, Other)
  Sender: FDA-Public Use
  Company Number: US-GILEAD-2018-0331935

PATIENT
  Age: 19 Year
  Sex: Female

DRUGS (3)
  1. AMBRISENTAN [Suspect]
     Active Substance: AMBRISENTAN
     Indication: PULMONARY HYPERTENSION
     Dosage: 10 MG, QD
     Route: 065
     Dates: start: 20130904, end: 20180415
  2. VELETRI [Concomitant]
     Active Substance: EPOPROSTENOL
     Dosage: 59 NG/KG/MIN
     Dates: end: 20180415
  3. ADCIRCA [Concomitant]
     Active Substance: TADALAFIL
     Dosage: 40 MG, QD
     Dates: end: 20180415

REACTIONS (2)
  - Cardiac arrest [Fatal]
  - Device dislocation [Unknown]

NARRATIVE: CASE EVENT DATE: 20180406
